FAERS Safety Report 8446404-1 (Version None)
Quarter: 2012Q2

REPORT INFORMATION
  Report Type: 
  Country: None (occurrence: None)
  Receive Date: 20120618
  Receipt Date: 20120208
  Transmission Date: 20120825
  Serious: No
  Sender: FDA-Public Use
  Company Number: US-TEVA-321781USA

PATIENT
  Sex: Male
  Weight: 99.88 kg

DRUGS (6)
  1. ACTIQ [Suspect]
     Indication: COLON CANCER
     Dosage: AS NEEDED
     Route: 002
     Dates: start: 20110101, end: 20110101
  2. DILAUDID [Concomitant]
     Indication: COLON CANCER
     Dosage: 8 MILLIGRAM;
     Route: 048
     Dates: start: 20110101
  3. GLUCOSE OXIDASE [Suspect]
  4. FENTANYL-100 [Concomitant]
     Indication: COLON CANCER
     Dosage: 25 MICROGRAM;
     Route: 061
     Dates: start: 20110101
  5. ADDERAL XR [Concomitant]
     Indication: SOMNOLENCE
     Dosage: 20 MILLIGRAM;
     Route: 048
  6. OXYCODONE HCL [Concomitant]
     Indication: COLON CANCER
     Dosage: 60 MICROGRAM;
     Route: 048
     Dates: start: 20110101, end: 20110101

REACTIONS (2)
  - GINGIVAL BLISTER [None]
  - ORAL MUCOSAL BLISTERING [None]
